FAERS Safety Report 24890833 (Version 1)
Quarter: 2025Q1

REPORT INFORMATION
  Report Type: Spontaneous
  Country: US (occurrence: US)
  Receive Date: 20250127
  Receipt Date: 20250127
  Transmission Date: 20250409
  Serious: No
  Sender: PFIZER
  Company Number: US-PFIZER INC-PV202500009102

PATIENT
  Sex: Male

DRUGS (7)
  1. METOPROLOL TARTRATE [Suspect]
     Active Substance: METOPROLOL TARTRATE
  2. LIPITOR [Suspect]
     Active Substance: ATORVASTATIN CALCIUM
  3. NITROGLYCERIN [Suspect]
     Active Substance: NITROGLYCERIN
  4. PLAVIX [Suspect]
     Active Substance: CLOPIDOGREL BISULFATE
  5. SIMVASTATIN [Suspect]
     Active Substance: SIMVASTATIN
  6. ENTRESTO [Suspect]
     Active Substance: SACUBITRIL\VALSARTAN
  7. ZOCOR [Suspect]
     Active Substance: SIMVASTATIN

REACTIONS (4)
  - Chest pain [Unknown]
  - Urticaria chronic [Unknown]
  - Arachnoid cyst [Unknown]
  - White matter lesion [Unknown]
